FAERS Safety Report 12353223 (Version 1)
Quarter: 2016Q2

REPORT INFORMATION
  Report Type: Spontaneous
  Country: CA (occurrence: CA)
  Receive Date: 20160510
  Receipt Date: 20160510
  Transmission Date: 20160815
  Serious: Yes (Other)
  Sender: FDA-Public Use
  Company Number: CA-BAUSCH-BL-2016-010770

PATIENT
  Age: 53 Year
  Sex: Female

DRUGS (7)
  1. BUDESONIDE. [Suspect]
     Active Substance: BUDESONIDE
     Indication: ASTHMA
     Route: 065
  2. CALCIUM [Concomitant]
     Active Substance: CALCIUM
     Indication: SUPPLEMENTATION THERAPY
  3. MOMETASONE FUROATE MONOHYDRATE. [Suspect]
     Active Substance: MOMETASONE FUROATE MONOHYDRATE
     Indication: ASTHMA
     Route: 065
  4. FORMOTEROL FUMARATE DIHYDRATE [Suspect]
     Active Substance: FORMOTEROL FUMARATE DIHYDRATE
     Indication: ASTHMA
     Dosage: 2 DOSES
     Route: 065
  5. ALENDRONIC ACID [Suspect]
     Active Substance: ALENDRONIC ACID
     Indication: BONE DENSITY DECREASED
     Route: 065
  6. VITAMIN D [Concomitant]
     Active Substance: CHOLECALCIFEROL
     Indication: SUPPLEMENTATION THERAPY
  7. 17 BETA-ESTRADIOL [Concomitant]
     Indication: POLYCYSTIC OVARIES
     Route: 062
     Dates: start: 1996

REACTIONS (1)
  - Stress fracture [Recovered/Resolved]
